FAERS Safety Report 7100128-1 (Version None)
Quarter: 2010Q4

REPORT INFORMATION
  Report Type: 
  Country: None (occurrence: None)
  Receive Date: 20101112
  Receipt Date: 20100326
  Transmission Date: 20110411
  Serious: No
  Sender: FDA-Public Use
  Company Number: A0852188A

PATIENT
  Age: 70 Year
  Sex: Female

DRUGS (9)
  1. CARVEDILOL [Suspect]
     Dosage: 3.125MG TWICE PER DAY
     Route: 048
     Dates: end: 20090601
  2. SPIRONOLACTONE [Concomitant]
  3. ASPIRIN [Concomitant]
  4. SIMVASTATIN [Concomitant]
  5. ARMOUR THYROID [Concomitant]
  6. IBUPROFEN [Concomitant]
  7. HYDROCODONE [Concomitant]
  8. VITAMINS [Concomitant]
  9. FISH OIL [Concomitant]

REACTIONS (5)
  - BLOOD PRESSURE DECREASED [None]
  - CARDIAC PACEMAKER INSERTION [None]
  - DIZZINESS [None]
  - DYSPNOEA [None]
  - HEART RATE DECREASED [None]
